FAERS Safety Report 8503663-4 (Version None)
Quarter: 2012Q3

REPORT INFORMATION
  Report Type: 
  Country: None (occurrence: None)
  Receive Date: 20120702
  Receipt Date: 20120615
  Transmission Date: 20120928
  Serious: Yes (Hospitalization)
  Sender: FDA-Public Use
  Company Number: SPI201200104

PATIENT
  Age: 19 Year
  Sex: Female
  Weight: 71.7 kg

DRUGS (1)
  1. AMITIZA [Suspect]
     Indication: CONSTIPATION
     Dosage: 24 MCG, BID, ORAL, 24 MCG, QD, ORAL
     Route: 048

REACTIONS (1)
  - COLITIS [None]
